FAERS Safety Report 5528430-5 (Version None)
Quarter: 2007Q4

REPORT INFORMATION
  Report Type: 
  Country: None (occurrence: None)
  Receive Date: 20071128
  Receipt Date: 20071121
  Transmission Date: 20080405
  Serious: Yes (Hospitalization, Other)
  Sender: FDA-Public Use
  Company Number: US-ROXANE LABORATORIES, INC-2007-DE-06895GD

PATIENT
  Age: 47 Year
  Sex: Female

DRUGS (8)
  1. MORPHINE SULFATE [Suspect]
     Indication: ABDOMINAL PAIN
     Dosage: 2 MG PER HOUR
     Route: 042
  2. MORPHINE [Suspect]
     Indication: ABDOMINAL PAIN
     Dosage: 4 MG DEMAND DOSE EVERY 6 MIN AS NEEDED
     Route: 042
  3. MORPHINE [Suspect]
     Dosage: 4 MG AS NEEDED
  4. HYDROMORPHONE HCL [Suspect]
     Indication: ABDOMINAL PAIN
     Route: 042
  5. FENTANYL [Suspect]
     Indication: ABDOMINAL PAIN
     Dosage: 25-175 MCG PER HOUR
     Route: 062
  6. FENTANYL [Suspect]
     Dosage: 10-75 MCG/H WITH BOLUSES OF 15-50 MCG EVERY 6 MIN
     Route: 042
  7. FENTANYL [Suspect]
     Dosage: 800 MCG AS NEEDED
  8. LORAZEPAM [Concomitant]
     Route: 042

REACTIONS (12)
  - AMNESIA [None]
  - DRUG DEPENDENCE [None]
  - DRUG EFFECT DECREASED [None]
  - ENTEROCUTANEOUS FISTULA [None]
  - MENTAL STATUS CHANGES [None]
  - NAUSEA [None]
  - PULMONARY EMBOLISM [None]
  - SEPSIS [None]
  - SMALL INTESTINAL OBSTRUCTION [None]
  - STATUS EPILEPTICUS [None]
  - VOMITING [None]
  - WITHDRAWAL SYNDROME [None]
